FAERS Safety Report 8508413 (Version 3)
Quarter: 2015Q2

REPORT INFORMATION
  Report Type: Spontaneous
  Country: US (occurrence: US)
  Receive Date: 20120412
  Receipt Date: 20150505
  Transmission Date: 20150821
  Serious: Yes (Other)
  Sender: FDA-Public Use
  Company Number: US-ASTRAZENECA-2011SE58114

PATIENT
  Age: 22341 Day
  Sex: Female
  Weight: 77.1 kg

DRUGS (13)
  1. ZOFRAN [Concomitant]
     Active Substance: ONDANSETRON HYDROCHLORIDE
     Indication: NAUSEA
     Route: 060
  2. NEXIUM [Suspect]
     Active Substance: ESOMEPRAZOLE MAGNESIUM
     Indication: DYSPEPSIA
     Route: 048
  3. CRESTOR [Suspect]
     Active Substance: ROSUVASTATIN CALCIUM
     Indication: BLOOD CHOLESTEROL ABNORMAL
     Route: 048
  4. XANAX [Concomitant]
     Active Substance: ALPRAZOLAM
     Indication: PANIC DISORDER
     Route: 048
  5. SYMBICORT [Suspect]
     Active Substance: BUDESONIDE\FORMOTEROL FUMARATE DIHYDRATE
     Indication: DYSPNOEA
     Dosage: 160 SLASH 4.5, BID
     Route: 055
  6. FENTALYN [Concomitant]
     Indication: PAIN
     Route: 061
  7. NEXIUM [Suspect]
     Active Substance: ESOMEPRAZOLE MAGNESIUM
     Indication: BURN OESOPHAGEAL
     Route: 048
     Dates: start: 2014, end: 20150325
  8. NEXIUM [Suspect]
     Active Substance: ESOMEPRAZOLE MAGNESIUM
     Indication: DYSPEPSIA
     Route: 048
     Dates: start: 2014, end: 20150325
  9. PERCOCET [Concomitant]
     Active Substance: ACETAMINOPHEN\OXYCODONE HYDROCHLORIDE
     Indication: PAIN
     Route: 048
  10. PROAIR ALBUTERAL [Concomitant]
     Indication: DYSPNOEA
     Route: 055
  11. NEXIUM [Suspect]
     Active Substance: ESOMEPRAZOLE MAGNESIUM
     Indication: BURN OESOPHAGEAL
     Route: 048
  12. SYNTHROID [Concomitant]
     Active Substance: LEVOTHYROXINE SODIUM
     Indication: HYPOTHYROIDISM
     Route: 048
  13. IMITRX INJECTION [Concomitant]
     Indication: MIGRAINE

REACTIONS (19)
  - Gastrooesophageal reflux disease [Unknown]
  - Ulcer [Unknown]
  - Drug dose omission [Unknown]
  - Lymphadenopathy [Unknown]
  - Neuralgia [Unknown]
  - Bone disorder [Unknown]
  - Anxiety [Unknown]
  - Depression [Unknown]
  - Post-traumatic stress disorder [Unknown]
  - Product use issue [Unknown]
  - Malaise [Unknown]
  - Memory impairment [Unknown]
  - Back disorder [Unknown]
  - Arterial disorder [Unknown]
  - Asthenia [Unknown]
  - Panic disorder [Unknown]
  - Sinus headache [Unknown]
  - Helicobacter infection [Recovered/Resolved]
  - Headache [Unknown]

NARRATIVE: CASE EVENT DATE: 201407
